FAERS Safety Report 20023746 (Version 1)
Quarter: 2021Q4

REPORT INFORMATION
  Report Type: Spontaneous
  Country: JP (occurrence: JP)
  Receive Date: 20211102
  Receipt Date: 20211102
  Transmission Date: 20220304
  Serious: Yes (Death, Other)
  Sender: FDA-Public Use
  Company Number: JP-TAKEDA-2021TJP113654

PATIENT
  Age: 8 Decade
  Sex: Female

DRUGS (1)
  1. ZEJULA [Suspect]
     Active Substance: NIRAPARIB
     Indication: Ovarian cancer
     Dosage: 200 MILLIGRAM, QD
     Route: 048
     Dates: start: 20211001, end: 20211027

REACTIONS (9)
  - Death [Fatal]
  - Haematochezia [Unknown]
  - Intestinal obstruction [Unknown]
  - Myelosuppression [Unknown]
  - Hypoglycaemia [Unknown]
  - Abdominal distension [Unknown]
  - Stomatitis [Unknown]
  - Blood pressure increased [Unknown]
  - Diarrhoea [Unknown]

NARRATIVE: CASE EVENT DATE: 20211015
